FAERS Safety Report 21984607 (Version 1)
Quarter: 2023Q1

REPORT INFORMATION
  Report Type: Spontaneous
  Country: US (occurrence: US)
  Receive Date: 20230213
  Receipt Date: 20230213
  Transmission Date: 20230418
  Serious: Yes (Hospitalization, Other)
  Sender: FDA-Public Use
  Company Number: US-AMGEN-USASP2023021483

PATIENT
  Age: 27 Month
  Sex: Male

DRUGS (2)
  1. BLINCYTO [Suspect]
     Active Substance: BLINATUMOMAB
     Indication: B precursor type acute leukaemia
     Dosage: UNK
     Route: 065
  2. Immunoglobulin [Concomitant]
     Indication: Hypogammaglobulinaemia
     Dosage: UNK
     Route: 040

REACTIONS (2)
  - Streptococcal bacteraemia [Unknown]
  - Antibody test abnormal [Unknown]
